FAERS Safety Report 11173666 (Version 2)
Quarter: 2016Q1

REPORT INFORMATION
  Report Type: Report from Study
  Country: SI (occurrence: SI)
  Receive Date: 20150609
  Receipt Date: 20160121
  Transmission Date: 20160525
  Serious: Yes (Hospitalization)
  Sender: FDA-Public Use
  Company Number: PHHY2015SI027680

PATIENT
  Age: 20 Year
  Sex: Female
  Weight: 78.9 kg

DRUGS (8)
  1. VOTUBIA [Suspect]
     Active Substance: EVEROLIMUS
     Dosage: 7.5 MG, QD
     Route: 048
  2. VALPROIC ACID. [Concomitant]
     Active Substance: VALPROIC ACID
     Dosage: 1000 MG, UNK
     Route: 048
     Dates: start: 20110120
  3. VALPROIC ACID. [Concomitant]
     Active Substance: VALPROIC ACID
     Indication: EPILEPSY
     Dosage: 500 MG, BID
     Route: 048
     Dates: start: 1995
  4. VALPROIC ACID. [Concomitant]
     Active Substance: VALPROIC ACID
     Dosage: 300 MG, UNK
     Route: 048
     Dates: start: 20061229
  5. LAMOTRIGINE. [Concomitant]
     Active Substance: LAMOTRIGINE
     Dosage: 150 MG, BID
     Route: 048
     Dates: start: 2007
  6. VOTUBIA [Suspect]
     Active Substance: EVEROLIMUS
     Dosage: 5 MG, QD
     Route: 048
     Dates: end: 20150303
  7. LAMOTRIGINE. [Concomitant]
     Active Substance: LAMOTRIGINE
     Indication: EPILEPSY
     Dosage: 300 MG, UNK
     Route: 065
     Dates: start: 20061229
  8. VOTUBIA [Suspect]
     Active Substance: EVEROLIMUS
     Indication: ASTROCYTOMA, LOW GRADE
     Dosage: 5 MG, QD
     Route: 048
     Dates: start: 20120120

REACTIONS (3)
  - Hyperglycaemia [Recovered/Resolved]
  - Diabetes mellitus [Recovered/Resolved]
  - Glycosylated haemoglobin increased [Unknown]

NARRATIVE: CASE EVENT DATE: 20150303
